FAERS Safety Report 6245776-6 (Version None)
Quarter: 2009Q2

REPORT INFORMATION
  Report Type: 
  Country: None (occurrence: None)
  Receive Date: 20090624
  Receipt Date: 20090616
  Transmission Date: 20091009
  Serious: Yes (Hospitalization)
  Sender: FDA-Public Use
  Company Number: 09US001180

PATIENT
  Age: 71 Year
  Sex: Male

DRUGS (7)
  1. PEXEVA [Suspect]
     Indication: DEPRESSION
     Dosage: 20 MG, QD
     Dates: start: 20090101, end: 20090601
  2. PRIMIDONE [Concomitant]
  3. LIPITOR [Concomitant]
  4. VERAPAMIL [Concomitant]
  5. LANOXIN [Concomitant]
  6. FLECAINIDE ACETATE [Concomitant]
  7. SITAGLIPTIN [Concomitant]

REACTIONS (2)
  - BLOOD GLUCOSE INCREASED [None]
  - RHABDOMYOLYSIS [None]
